FAERS Safety Report 7350749-6 (Version None)
Quarter: 2011Q1

REPORT INFORMATION
  Report Type: 
  Country: None (occurrence: None)
  Receive Date: 20110314
  Receipt Date: 20110310
  Transmission Date: 20110831
  Serious: Yes (Hospitalization)
  Sender: FDA-Public Use
  Company Number: DE-EISAI INC-E2020-08664-CLI-DE

PATIENT
  Age: 80 Year
  Sex: Female
  Weight: 73 kg

DRUGS (9)
  1. ANTIHYPERTENSIVES [Concomitant]
  2. LIPID LOWERING AGENT [Concomitant]
  3. ASS 100 [Concomitant]
     Route: 048
  4. FUROSEMIDE [Concomitant]
     Indication: HYPERTENSION
     Route: 048
     Dates: start: 20000626
  5. ARICEPT [Suspect]
     Route: 048
     Dates: start: 20100209
  6. DIURETICS [Concomitant]
  7. CAPTOPRIL [Concomitant]
     Indication: HYPERTENSION
     Route: 048
     Dates: start: 20000626
  8. SIMVASTATIN [Concomitant]
     Route: 048
     Dates: start: 20050907
  9. ARICEPT [Suspect]
     Route: 048
     Dates: start: 20100112, end: 20100208

REACTIONS (1)
  - VAGINAL CANCER [None]
